FAERS Safety Report 9322746 (Version 1)
Quarter: 2013Q2

REPORT INFORMATION
  Report Type: Spontaneous
  Country: FR (occurrence: FR)
  Receive Date: 20130601
  Receipt Date: 20130601
  Transmission Date: 20140414
  Serious: Yes (Hospitalization)
  Sender: FDA-Public Use
  Company Number: FR-ROCHE-1231010

PATIENT
  Age: 40 Year
  Sex: Female

DRUGS (14)
  1. MABTHERA [Suspect]
     Indication: B-CELL LYMPHOMA
     Route: 042
     Dates: start: 20111219, end: 20111219
  2. METHOTREXATE [Suspect]
     Indication: B-CELL LYMPHOMA
     Route: 037
     Dates: start: 20111219, end: 20111219
  3. HYDROCORTANCYL [Suspect]
     Indication: B-CELL LYMPHOMA
     Route: 037
     Dates: start: 20111219, end: 20111219
  4. METHYLPREDNISOLONE [Suspect]
     Indication: B-CELL LYMPHOMA
     Route: 042
     Dates: start: 20111219, end: 20111219
  5. VINCRISTINE [Suspect]
     Indication: B-CELL LYMPHOMA
     Route: 042
     Dates: start: 20111219, end: 20111219
  6. DOXORUBICINE [Suspect]
     Indication: B-CELL LYMPHOMA
     Route: 042
     Dates: start: 20111219, end: 20111219
  7. ENDOXAN [Suspect]
     Indication: B-CELL LYMPHOMA
     Route: 042
     Dates: start: 20111219, end: 20111219
  8. UROMITEXAN [Suspect]
     Indication: B-CELL LYMPHOMA
     Route: 042
     Dates: start: 20111219, end: 20111219
  9. PARACETAMOL [Concomitant]
     Route: 065
  10. GRANOCYTE [Concomitant]
     Route: 065
  11. VALACICLOVIR [Concomitant]
     Route: 065
  12. PREDNISONE [Concomitant]
     Route: 065
  13. VITAMIN B12 [Concomitant]
     Route: 065
  14. ESOMEPRAZOLE [Concomitant]
     Route: 065

REACTIONS (2)
  - Cerebral venous thrombosis [Recovered/Resolved]
  - Headache [Recovered/Resolved]
